FAERS Safety Report 21969435 (Version 1)
Quarter: 2023Q1

REPORT INFORMATION
  Report Type: Report from Study
  Country: AR (occurrence: AR)
  Receive Date: 20230208
  Receipt Date: 20230208
  Transmission Date: 20230418
  Serious: Yes (Death, Other)
  Sender: FDA-Public Use
  Company Number: AR-Merck Healthcare KGaA-9381619

PATIENT
  Age: 42 Year
  Sex: Male

DRUGS (1)
  1. CETUXIMAB [Suspect]
     Active Substance: CETUXIMAB
     Indication: Colorectal cancer
     Dosage: 438 MG, EVERY 2 WEEKS
     Route: 065
     Dates: start: 20220818

REACTIONS (6)
  - Death [Fatal]
  - General physical health deterioration [Unknown]
  - Mastication disorder [Unknown]
  - Decubitus ulcer [Unknown]
  - Weight decreased [Unknown]
  - Off label use [Unknown]

NARRATIVE: CASE EVENT DATE: 20230117
